FAERS Safety Report 8379683-X (Version None)
Quarter: 2012Q2

REPORT INFORMATION
  Report Type: 
  Country: None (occurrence: None)
  Receive Date: 20120523
  Receipt Date: 20120517
  Transmission Date: 20120825
  Serious: Yes (Life-Threatening, Other)
  Sender: FDA-Public Use
  Company Number: JP-ASTELLAS-2012JP003304

PATIENT
  Age: 75 Year
  Sex: Female

DRUGS (7)
  1. MAGMITT [Concomitant]
     Dosage: UNK
     Route: 048
     Dates: start: 20110101
  2. CYMBALTA [Concomitant]
     Dosage: UNK
     Route: 048
     Dates: start: 20110101
  3. ROZEREM [Concomitant]
     Dosage: UNK
     Route: 048
     Dates: start: 20110101
  4. ARICEPT [Concomitant]
     Dosage: UNK
     Route: 048
     Dates: start: 20110101
  5. ASPIRIN [Concomitant]
     Dosage: UNK
     Route: 048
     Dates: start: 20110101
  6. SERMION [Concomitant]
     Dosage: UNK
     Route: 048
     Dates: start: 20110101
  7. VESICARE [Suspect]
     Indication: HYPERTONIC BLADDER
     Dosage: 5 MG, UID/QD
     Route: 048
     Dates: start: 20120208, end: 20120307

REACTIONS (2)
  - ERYTHEMA MULTIFORME [None]
  - NEUTROPHIL COUNT INCREASED [None]
